FAERS Safety Report 7440593-3 (Version None)
Quarter: 2011Q2

REPORT INFORMATION
  Report Type: 
  Country: None (occurrence: None)
  Receive Date: 20110427
  Receipt Date: 20110419
  Transmission Date: 20111010
  Serious: Yes (Other)
  Sender: FDA-Public Use
  Company Number: B0711233A

PATIENT
  Age: 35 Year
  Sex: Male

DRUGS (6)
  1. SALMETEROL [Concomitant]
  2. PREDNISOLONE [Suspect]
  3. FLUTICASONE PROPIONATE [Suspect]
     Route: 055
  4. ALBUTEROL SULFATE AUTOHALER [Concomitant]
  5. THEOPHYLLINE [Concomitant]
  6. OPIOIDS [Concomitant]

REACTIONS (16)
  - ASTHENIA [None]
  - URINARY INCONTINENCE [None]
  - CUSHINGOID [None]
  - CONDITION AGGRAVATED [None]
  - SENSORY DISTURBANCE [None]
  - HYPERREFLEXIA [None]
  - GAIT DISTURBANCE [None]
  - HYPOAESTHESIA [None]
  - HYPERTONIA [None]
  - EPIDURAL LIPOMATOSIS [None]
  - SPINAL CORD COMPRESSION [None]
  - WEIGHT INCREASED [None]
  - MUSCULAR WEAKNESS [None]
  - CLONUS [None]
  - DRUG DEPENDENCE [None]
  - ERECTILE DYSFUNCTION [None]
